FAERS Safety Report 6868437-9 (Version None)
Quarter: 2010Q3

REPORT INFORMATION
  Report Type: 
  Country: None (occurrence: None)
  Receive Date: 20100722
  Receipt Date: 20080529
  Transmission Date: 20110219
  Serious: Yes (Hospitalization, Other)
  Sender: FDA-Public Use
  Company Number: US-PFIZER INC-2008046291

PATIENT
  Sex: Male
  Weight: 88.5 kg

DRUGS (1)
  1. CHANTIX [Suspect]
     Indication: SMOKING CESSATION THERAPY
     Route: 048
     Dates: start: 20080201, end: 20080516

REACTIONS (3)
  - CONSTIPATION [None]
  - DEPRESSION [None]
  - SUICIDE ATTEMPT [None]
